FAERS Safety Report 16297663 (Version 1)
Quarter: 2019Q2

REPORT INFORMATION
  Report Type: Spontaneous
  Country: US (occurrence: US)
  Receive Date: 20190510
  Receipt Date: 20190510
  Transmission Date: 20190711
  Serious: No
  Sender: FDA-Public Use
  Company Number: US-B.I. PHARMACEUTICALS,INC./RIDGEFIELD-2019-BI-020730

PATIENT
  Sex: Female

DRUGS (1)
  1. SPIRIVA [Suspect]
     Active Substance: TIOTROPIUM BROMIDE MONOHYDRATE
     Indication: CHRONIC OBSTRUCTIVE PULMONARY DISEASE
     Dosage: FREQUENCY TEXT: INHALE THE CONTENTS OF 1 CAPSULE ONCE A DAY;  ACTION(S) : DOSE NOT CHANGED
     Route: 055
     Dates: start: 201611

REACTIONS (1)
  - Wheezing [Unknown]
